FAERS Safety Report 7168500-1 (Version None)
Quarter: 2010Q4

REPORT INFORMATION
  Report Type: 
  Country: None (occurrence: None)
  Receive Date: 20101216
  Receipt Date: 20101201
  Transmission Date: 20110411
  Serious: Yes (Hospitalization)
  Sender: FDA-Public Use
  Company Number: US-ELI_LILLY_AND_COMPANY-US201012000496

PATIENT
  Sex: Female

DRUGS (14)
  1. GEMCITABINE HCL [Suspect]
     Indication: PANCREATIC CARCINOMA METASTATIC
     Dosage: 1600 MG, WEEKLY (1/W)
     Route: 042
     Dates: start: 20100301, end: 20100305
  2. GEMCITABINE HCL [Suspect]
     Dosage: 1200 MG, OTHER
     Route: 042
     Dates: start: 20100315, end: 20100315
  3. OTHER PHARMA COMPANY INV DRUG [Suspect]
     Indication: PANCREATIC CARCINOMA METASTATIC
     Dosage: 48 MG/KG, OTHER
     Route: 042
     Dates: start: 20100301, end: 20100301
  4. MS CONTIN [Concomitant]
     Dosage: UNK, UNKNOWN
     Route: 065
  5. MSIR [Concomitant]
     Dosage: UNK, UNKNOWN
     Route: 065
  6. PERCOCET [Concomitant]
     Dosage: UNK, UNKNOWN
     Route: 065
  7. PROTONIX [Concomitant]
     Dosage: UNK, UNKNOWN
     Route: 065
  8. FRAGMIN [Concomitant]
     Dosage: UNK, UNKNOWN
     Route: 065
  9. LYRICA [Concomitant]
     Dosage: UNK, UNKNOWN
     Route: 065
  10. NOVOLOG [Concomitant]
     Dosage: UNK, UNKNOWN
     Route: 065
  11. LANTUS [Concomitant]
     Dosage: UNK, UNKNOWN
     Route: 065
  12. LORAZEPAM [Concomitant]
     Dosage: UNK, UNKNOWN
     Route: 065
  13. REGLAN [Concomitant]
     Dosage: UNK, UNKNOWN
     Route: 065
  14. ZOFRAN [Concomitant]
     Dosage: UNK, UNKNOWN
     Route: 065

REACTIONS (3)
  - COLITIS [None]
  - HYPOTENSION [None]
  - LUNG INFILTRATION [None]
